FAERS Safety Report 25913265 (Version 1)
Quarter: 2025Q4

REPORT INFORMATION
  Report Type: Spontaneous
  Country: US (occurrence: US)
  Receive Date: 20251013
  Receipt Date: 20251013
  Transmission Date: 20260117
  Serious: No
  Sender: Haleon PLC
  Company Number: US-HALEON-2267626

PATIENT
  Age: 94 Year
  Sex: Female

DRUGS (1)
  1. TUMS [Suspect]
     Active Substance: CALCIUM CARBONATE
     Indication: Gastrooesophageal reflux disease

REACTIONS (2)
  - Gastrooesophageal reflux disease [Unknown]
  - Drug ineffective [Unknown]
